FAERS Safety Report 6012406-8 (Version None)
Quarter: 2008Q4

REPORT INFORMATION
  Report Type: 
  Country: None (occurrence: None)
  Receive Date: 20081218
  Receipt Date: 20081013
  Transmission Date: 20090506
  Serious: No
  Sender: FDA-Public Use
  Company Number: US-ASTRAZENECA-2008UW22453

PATIENT
  Age: 68 Year
  Sex: Female

DRUGS (4)
  1. SYMBICORT [Suspect]
     Indication: ASTHMA
     Dosage: 80/4.5 UG TWO TIMES PER DAY  (2 PUFFS PER DAY)
     Route: 055
     Dates: start: 20081007
  2. VERAMYST [Concomitant]
  3. ANTIHISTAMINE [Concomitant]
  4. SUDAFED 12 HOUR [Concomitant]

REACTIONS (1)
  - DYSPNOEA [None]
